FAERS Safety Report 7126201-X (Version None)
Quarter: 2010Q4

REPORT INFORMATION
  Report Type: 
  Country: None (occurrence: None)
  Receive Date: 20101115
  Receipt Date: 20101103
  Transmission Date: 20110411
  Serious: Yes (Hospitalization, Disabling, Other)
  Sender: FDA-Public Use
  Company Number: SUNNJ-10-0014

PATIENT
  Age: 39 Year
  Sex: Male
  Weight: 106.81 kg

DRUGS (8)
  1. HYDROCODONE/APAP TABLETS 10MG/325MG LABELER: SUN PH. [Suspect]
     Indication: BACK PAIN
     Dosage: 4 TABLETS, DAILY, ORAL
     Route: 048
     Dates: start: 20060101, end: 20100602
  2. ZOLPIDEM TARTRATE [Suspect]
     Indication: SLEEP DISORDER
     Dosage: 10MG, AT BEDTIME, ORAL
     Route: 048
     Dates: start: 20080901, end: 20100602
  3. ZOLPIDEM TARTRATE 10MG SUBLINGUAL (EDLUAR) [Suspect]
     Indication: INITIAL INSOMNIA
     Dosage: 10MG, HS, SUBLINGUAL
     Route: 060
     Dates: start: 20100501, end: 20100602
  4. CARISOPRODOL [Suspect]
     Indication: BACK PAIN
     Dosage: 350MG, 3 PER DAY, ORAL
     Route: 048
     Dates: start: 20080401, end: 20100602
  5. AMITRIPTYLINE [Suspect]
     Indication: BACK PAIN
     Dosage: 50M MG, DAILY, ORAL
     Route: 048
     Dates: start: 20060101, end: 20100602
  6. PRISTIQ [Concomitant]
  7. ANTIDEPRESSANT [Concomitant]
  8. ZOLPIDEM [Concomitant]

REACTIONS (10)
  - AMNESIA [None]
  - BACK PAIN [None]
  - FEELING ABNORMAL [None]
  - HALLUCINATION [None]
  - INCORRECT DOSE ADMINISTERED [None]
  - INITIAL INSOMNIA [None]
  - LOSS OF CONSCIOUSNESS [None]
  - NECK PAIN [None]
  - ROAD TRAFFIC ACCIDENT [None]
  - UNRESPONSIVE TO STIMULI [None]
